FAERS Safety Report 23176307 (Version 1)
Quarter: 2023Q4

REPORT INFORMATION
  Report Type: Report from Study
  Country: US (occurrence: US)
  Receive Date: 20231113
  Receipt Date: 20231113
  Transmission Date: 20240110
  Serious: No
  Sender: FDA-Public Use
  Company Number: US-drreddys-SPO/USA/23/0178754

PATIENT
  Age: 18 Year
  Sex: Female
  Weight: 59 kg

DRUGS (1)
  1. SAPROPTERIN DIHYDROCHLORIDE [Suspect]
     Active Substance: SAPROPTERIN DIHYDROCHLORIDE
     Indication: Hyperphenylalaninaemia
     Dosage: 6 100 MG PACKETS IN 4 TO 8 OUNCES OF WATER OR APPLE JUICE AN TAKE BY MOUTH
     Route: 048

REACTIONS (2)
  - Nausea [Unknown]
  - Abdominal discomfort [Recovering/Resolving]
